FAERS Safety Report 8573054-9 (Version None)
Quarter: 2012Q3

REPORT INFORMATION
  Report Type: 
  Country: None (occurrence: None)
  Receive Date: 20120806
  Receipt Date: 20120725
  Transmission Date: 20120928
  Serious: Yes (Hospitalization)
  Sender: FDA-Public Use
  Company Number: US-BAYER-201038460NA

PATIENT
  Age: 29 Year
  Sex: Female
  Weight: 68 kg

DRUGS (9)
  1. IBUPROFEN [Concomitant]
     Dosage: UNK UNK, PRN
     Dates: start: 20030601
  2. TYLENOL (CAPLET) [Concomitant]
     Dosage: UNK UNK, PRN
     Dates: start: 20030601
  3. BEYAZ [Suspect]
     Dosage: UNK
     Dates: start: 20030125, end: 20030617
  4. NSAID'S [Concomitant]
     Dosage: UNK UNK, PRN
     Dates: start: 20030601
  5. ZOLOFT [Concomitant]
     Dosage: UNK
  6. YASMIN [Suspect]
     Indication: ORAL CONTRACEPTION
     Dosage: UNK
     Route: 048
     Dates: start: 20030125, end: 20030617
  7. IBUPROFEN (ADVIL) [Concomitant]
     Dosage: UNK UNK, PRN
     Dates: start: 20030601
  8. MOTRIN [Concomitant]
     Dosage: UNK
  9. ATIVAN [Concomitant]
     Dosage: UNK

REACTIONS (6)
  - PAIN [None]
  - PULMONARY EMBOLISM [None]
  - ARTHRALGIA [None]
  - DEEP VEIN THROMBOSIS [None]
  - CHEST DISCOMFORT [None]
  - JOINT SWELLING [None]
